FAERS Safety Report 13872659 (Version 1)
Quarter: 2017Q3

REPORT INFORMATION
  Report Type: Spontaneous
  Country: US (occurrence: US)
  Receive Date: 20170816
  Receipt Date: 20170816
  Transmission Date: 20171127
  Serious: No
  Sender: FDA-Public Use
  Company Number: US-BRISTOL-MYERS SQUIBB COMPANY-BMS-2017-071668

PATIENT
  Age: 63 Year
  Sex: Male

DRUGS (1)
  1. SPRYCEL [Suspect]
     Active Substance: DASATINIB
     Indication: CHRONIC MYELOID LEUKAEMIA
     Dosage: 100 MG, QD
     Route: 048
     Dates: start: 201612

REACTIONS (5)
  - Mass [Recovering/Resolving]
  - Salivary hypersecretion [Recovered/Resolved]
  - Flatulence [Unknown]
  - Speech disorder [Recovering/Resolving]
  - Sunburn [Recovered/Resolved]

NARRATIVE: CASE EVENT DATE: 20170726
